FAERS Safety Report 16118019 (Version 3)
Quarter: 2019Q2

REPORT INFORMATION
  Report Type: Report from Study
  Country: US (occurrence: HU)
  Receive Date: 20190326
  Receipt Date: 20190408
  Transmission Date: 20190711
  Serious: Yes (Death, Other)
  Sender: FDA-Public Use
  Company Number: US-SUNOVION-2019SUN001213

PATIENT

DRUGS (4)
  1. DOXAZOSIN [Suspect]
     Active Substance: DOXAZOSIN\DOXAZOSIN MESYLATE
     Indication: CARDIAC FAILURE
     Dosage: 2 MG, 4X
     Route: 065
  2. BISOPROLOL [Suspect]
     Active Substance: BISOPROLOL
     Indication: HYPERTENSION
     Dosage: UNK, 1X
     Route: 065
  3. SIMVASTATIN. [Suspect]
     Active Substance: SIMVASTATIN
     Indication: HYPERCHOLESTEROLAEMIA
     Dosage: 10 MG, 1X
     Route: 065
  4. INDACATEROL AND GLYCOPYRROLATE [Suspect]
     Active Substance: GLYCOPYRROLATE\INDACATEROL MALEATE
     Indication: CHRONIC OBSTRUCTIVE PULMONARY DISEASE
     Dosage: UNK
     Route: 065
     Dates: start: 20190117

REACTIONS (29)
  - Restlessness [Unknown]
  - Obesity [Unknown]
  - Cold sweat [Unknown]
  - Hyperhidrosis [Unknown]
  - Cardiac failure [Unknown]
  - Oedema peripheral [Unknown]
  - Cardiac disorder [Unknown]
  - Myocardial infarction [Unknown]
  - Dyspnoea at rest [Unknown]
  - Musculoskeletal pain [Unknown]
  - Pallor [Unknown]
  - Chest discomfort [Unknown]
  - Chest pain [Unknown]
  - Hypercholesterolaemia [Unknown]
  - Loss of consciousness [Unknown]
  - Myocardial ischaemia [Unknown]
  - Diabetes mellitus [Unknown]
  - Hyperuricaemia [Unknown]
  - Palpitations [Unknown]
  - Arteriosclerosis [Unknown]
  - Left ventricular failure [Fatal]
  - Angina unstable [Unknown]
  - Angina pectoris [Unknown]
  - Choking [Unknown]
  - Dyspnoea exertional [Unknown]
  - Fatigue [Unknown]
  - Myocardial necrosis [Unknown]
  - Hypertension [Unknown]
  - Chronic obstructive pulmonary disease [Unknown]

NARRATIVE: CASE EVENT DATE: 2002
